FAERS Safety Report 8737928 (Version 3)
Quarter: 2012Q4

REPORT INFORMATION
  Report Type: 
  Country: ES (occurrence: ES)
  Receive Date: 20120823
  Receipt Date: 20121011
  Transmission Date: 20130627
  Serious: Yes (Other)
  Sender: FDA-Public Use
  Company Number: ES-AMGEN-ESPSP2012052629

PATIENT
  Age: 36 Year
  Sex: Female
  Weight: 55 kg

DRUGS (6)
  1. ENBREL [Suspect]
     Indication: RHEUMATOID ARTHRITIS
     Dosage: 50 mg, weekly
     Route: 058
     Dates: start: 20110501
  2. ACFOL [Concomitant]
     Indication: RHEUMATOID ARTHRITIS
     Dosage: 2 DF, weekly
     Route: 048
  3. DACORTIN [Concomitant]
     Indication: RHEUMATOID ARTHRITIS
     Dosage: 5 mg, 1x/day
     Route: 048
  4. EUTHYROX [Concomitant]
     Indication: THYROIDITIS
     Dosage: 25 mg, 1x/day
     Route: 048
  5. NATECAL D [Concomitant]
     Indication: RHEUMATOID ARTHRITIS
     Dosage: 1 DF, 1x/day
     Route: 048
  6. METHOTREXATE [Concomitant]
     Indication: RHEUMATOID ARTHRITIS
     Dosage: 25 mg, 1x/day
     Route: 048

REACTIONS (1)
  - Hand deformity [Recovered/Resolved]
